FAERS Safety Report 6097958-4 (Version None)
Quarter: 2009Q1

REPORT INFORMATION
  Report Type: 
  Country: None (occurrence: None)
  Receive Date: 20090227
  Receipt Date: 20090225
  Transmission Date: 20090719
  Serious: No
  Sender: FDA-Public Use
  Company Number: JP-EISAI MEDICAL RESEARCH-E0800-00017-SOL-JP

PATIENT
  Age: 65 Year
  Sex: Male

DRUGS (5)
  1. SALAGEN [Suspect]
     Indication: DRY MOUTH
     Route: 048
     Dates: start: 20080612, end: 20080612
  2. ADALAT [Concomitant]
     Dosage: UNKNOWN
     Route: 048
  3. BLOPRESS [Concomitant]
     Dosage: UNKNOWN
     Route: 048
  4. FLIVAS [Concomitant]
     Dosage: UNKNOWN
     Route: 048
  5. RIZABEN [Concomitant]
     Indication: SCAR
     Route: 048
     Dates: start: 20071119

REACTIONS (1)
  - LOSS OF CONSCIOUSNESS [None]
